FAERS Safety Report 6659804-7 (Version None)
Quarter: 2010Q1

REPORT INFORMATION
  Report Type: 
  Country: None (occurrence: None)
  Receive Date: 20100330
  Receipt Date: 20100324
  Transmission Date: 20100710
  Serious: Yes (Hospitalization)
  Sender: FDA-Public Use
  Company Number: US-GILEAD-2010-0028154

PATIENT
  Sex: Female

DRUGS (31)
  1. LETAIRIS [Suspect]
     Indication: PULMONARY ARTERIAL HYPERTENSION
     Route: 048
     Dates: start: 20090612
  2. REVATIO [Concomitant]
  3. COUMADIN [Concomitant]
  4. OXYGEN [Concomitant]
  5. ALDACTONE [Concomitant]
  6. LASIX [Concomitant]
  7. HYDROCHLOROTHIAZIDE [Concomitant]
  8. ZAROXOLYN [Concomitant]
  9. BUMEX [Concomitant]
  10. AZOPT [Concomitant]
  11. XALATAN [Concomitant]
  12. MELOXICAM [Concomitant]
  13. LANOXIN [Concomitant]
  14. SYMBICORT [Concomitant]
  15. PRED FORTE [Concomitant]
  16. SPIRIVA [Concomitant]
  17. OMEPRAZOLE [Concomitant]
  18. ZETIA [Concomitant]
  19. METFORMIN HCL [Concomitant]
  20. HUMALOG MIX 75/25 [Concomitant]
  21. ALPHAGAN P [Concomitant]
  22. PROAIR HFA [Concomitant]
  23. PROVENTIL-HFA [Concomitant]
  24. VICODIN ES [Concomitant]
  25. CRESTOR [Concomitant]
  26. BURNEX [Concomitant]
  27. SYNTHROID [Concomitant]
  28. POTASSIUM CHLORIDE [Concomitant]
  29. XANAX [Concomitant]
  30. FERROUS SULFATE TAB [Concomitant]
  31. VITAMIN B-12 [Concomitant]

REACTIONS (2)
  - CHOKING [None]
  - DYSPNOEA [None]
